FAERS Safety Report 8184720-1 (Version None)
Quarter: 2012Q1

REPORT INFORMATION
  Report Type: 
  Country: None (occurrence: None)
  Receive Date: 20120305
  Receipt Date: 20120305
  Transmission Date: 20120608
  Serious: Yes (Life-Threatening, Hospitalization)
  Sender: FDA-Public Use
  Company Number: None

PATIENT
  Age: 35 Year
  Sex: Male
  Weight: 72.574 kg

DRUGS (1)
  1. PROMETHAZINE HCL [Suspect]

REACTIONS (16)
  - PHOTOSENSITIVITY REACTION [None]
  - PALPITATIONS [None]
  - BREAST PAIN [None]
  - PAIN [None]
  - BURNING SENSATION [None]
  - CONVULSION [None]
  - MIGRAINE [None]
  - DEPRESSION [None]
  - BRAIN INJURY [None]
  - FEELING ABNORMAL [None]
  - INSOMNIA [None]
  - SUICIDAL IDEATION [None]
  - PAIN IN EXTREMITY [None]
  - ARRHYTHMIA [None]
  - LOSS OF CONSCIOUSNESS [None]
  - TREMOR [None]
